FAERS Safety Report 7608737-8 (Version None)
Quarter: 2011Q3

REPORT INFORMATION
  Report Type: 
  Country: None (occurrence: None)
  Receive Date: 20110714
  Receipt Date: 20110703
  Transmission Date: 20111222
  Serious: Yes (Other)
  Sender: FDA-Public Use
  Company Number: CN-PFIZER INC-2011157835

PATIENT
  Age: 65 Year
  Sex: Male

DRUGS (2)
  1. DETROL [Suspect]
     Dosage: 4 MG, DAILY
     Route: 048
     Dates: start: 20110702, end: 20110703
  2. CARDURA [Concomitant]
     Route: 048

REACTIONS (2)
  - URINARY RETENTION [None]
  - DYSURIA [None]
